FAERS Safety Report 6079669-4 (Version None)
Quarter: 2009Q1

REPORT INFORMATION
  Report Type: 
  Country: None (occurrence: None)
  Receive Date: 20090217
  Receipt Date: 20090203
  Transmission Date: 20090719
  Serious: Yes (Death)
  Sender: FDA-Public Use
  Company Number: ES-JNJFOC-20070501288

PATIENT
  Sex: Male

DRUGS (5)
  1. REMICADE [Suspect]
     Indication: RHEUMATOID ARTHRITIS
     Route: 042
  2. AINES [Concomitant]
  3. ACFOL [Concomitant]
  4. OMEPRAZOLE [Concomitant]
  5. BIFPHOSPHONATES [Concomitant]

REACTIONS (1)
  - COLON CANCER STAGE IV [None]
